FAERS Safety Report 15786546 (Version 1)
Quarter: 2019Q1

REPORT INFORMATION
  Report Type: Report from Study
  Country: ES (occurrence: ES)
  Receive Date: 20190103
  Receipt Date: 20190103
  Transmission Date: 20190417
  Serious: Yes (Hospitalization)
  Sender: FDA-Public Use
  Company Number: ES-MYLANLABS-2018M1097764

PATIENT
  Age: 81 Year
  Sex: Male

DRUGS (8)
  1. ATENOLOL. [Suspect]
     Active Substance: ATENOLOL
     Indication: PRODUCT USED FOR UNKNOWN INDICATION
     Dosage: 25 MILLIGRAM, QD
     Route: 048
     Dates: start: 20030101, end: 20171207
  2. PRAVASTATINA                       /00880401/ [Concomitant]
     Dosage: 40 MG CENA
     Route: 048
     Dates: start: 20110101
  3. SINTROM [Concomitant]
     Active Substance: ACENOCOUMAROL
     Dosage: SP
     Route: 048
     Dates: start: 20110101
  4. ENALAPRIL [Suspect]
     Active Substance: ENALAPRIL
     Indication: PRODUCT USED FOR UNKNOWN INDICATION
     Dosage: 10 MILLIGRAM, QD
     Route: 048
     Dates: start: 20030101, end: 20171207
  5. ALOPURINOL [Concomitant]
     Active Substance: ALLOPURINOL
     Dosage: 100 MG DIA
     Route: 048
     Dates: start: 20110101
  6. TRAJENTA [Concomitant]
     Active Substance: LINAGLIPTIN
     Dosage: UNK UNK, QD
     Route: 048
     Dates: start: 20110101
  7. RANITIDINA                         /00550801/ [Concomitant]
     Dosage: 300 MG DIA
     Route: 048
     Dates: start: 20110101
  8. FUROSEMIDA                         /00032601/ [Concomitant]
     Active Substance: FUROSEMIDE
     Dosage: 40 MG DIA
     Route: 048
     Dates: start: 20110101

REACTIONS (1)
  - Hyperkalaemia [Recovered/Resolved]

NARRATIVE: CASE EVENT DATE: 20171207
